FAERS Safety Report 20297899 (Version 1)
Quarter: 2022Q1

REPORT INFORMATION
  Report Type: Spontaneous
  Country: DE (occurrence: DE)
  Receive Date: 20220105
  Receipt Date: 20220105
  Transmission Date: 20220423
  Serious: Yes (Hospitalization, Other)
  Sender: FDA-Public Use
  Company Number: DE-NOVARTISPH-NVSC2022DE000756

PATIENT
  Age: 66 Year
  Sex: Male
  Weight: 90 kg

DRUGS (6)
  1. MYCOPHENOLATE MOFETIL [Suspect]
     Active Substance: MYCOPHENOLATE MOFETIL
     Indication: Systemic scleroderma
     Dosage: UNK
     Route: 065
     Dates: start: 20201013, end: 20201220
  2. OFEV [Suspect]
     Active Substance: NINTEDANIB
     Indication: Systemic scleroderma
     Dosage: UNK
     Route: 065
     Dates: start: 20201110, end: 20201220
  3. SEMAGLUTIDE [Suspect]
     Active Substance: SEMAGLUTIDE
     Indication: Obesity
     Dosage: UNK
     Route: 065
     Dates: start: 20191103, end: 20200426
  4. SEMAGLUTIDE [Suspect]
     Active Substance: SEMAGLUTIDE
     Dosage: UNK
     Route: 065
     Dates: start: 20201021
  5. PIPERACILLIN [Concomitant]
     Active Substance: PIPERACILLIN
     Indication: Product used for unknown indication
     Dosage: UNK
     Route: 065
     Dates: start: 20201005, end: 20201012
  6. TAZOBACTAM [Concomitant]
     Active Substance: TAZOBACTAM
     Indication: Product used for unknown indication
     Dosage: UNK
     Route: 065
     Dates: start: 20201005, end: 20201012

REACTIONS (2)
  - Pneumonia [Recovered/Resolved]
  - Illness [Unknown]

NARRATIVE: CASE EVENT DATE: 20201219
